FAERS Safety Report 13472841 (Version 1)
Quarter: 2017Q2

REPORT INFORMATION
  Report Type: Spontaneous
  Country: US (occurrence: US)
  Receive Date: 20170424
  Receipt Date: 20170424
  Transmission Date: 20170830
  Serious: Yes (Other)
  Sender: FDA-Public Use
  Company Number: None

PATIENT
  Age: 25 Year
  Sex: Male
  Weight: 74.25 kg

DRUGS (1)
  1. PROPECIA [Suspect]
     Active Substance: FINASTERIDE
     Indication: ALOPECIA
     Dosage: ?          QUANTITY:21 TABLET(S);?
     Route: 048

REACTIONS (3)
  - Erectile dysfunction [None]
  - Loss of libido [None]
  - Testicular atrophy [None]

NARRATIVE: CASE EVENT DATE: 20110301
